FAERS Safety Report 8292023-X (Version None)
Quarter: 2012Q2

REPORT INFORMATION
  Report Type: 
  Country: None (occurrence: None)
  Receive Date: 20120417
  Receipt Date: 20120406
  Transmission Date: 20120825
  Serious: Yes (Hospitalization)
  Sender: FDA-Public Use
  Company Number: JP-VERTEX PHARMACEUTICALS INC.-AE-2012-004844

PATIENT
  Age: 49 Year
  Sex: Male

DRUGS (6)
  1. REBETOL [Concomitant]
     Indication: HEPATITIS C
     Route: 048
     Dates: start: 20120206
  2. PROMACTA [Concomitant]
     Route: 048
     Dates: start: 20120206
  3. TELAVIC (TELAPREVIR) [Suspect]
     Indication: HEPATITIS C
     Route: 048
     Dates: start: 20120206
  4. FAMOGAST [Concomitant]
     Route: 048
     Dates: start: 20120216
  5. PEG-INTRON [Concomitant]
     Indication: HEPATITIS C
     Route: 058
     Dates: start: 20120206
  6. AZULOXA [Concomitant]
     Route: 048
     Dates: start: 20120216

REACTIONS (1)
  - ERYTHEMA [None]
